FAERS Safety Report 9140907 (Version 1)
Quarter: 2013Q1

REPORT INFORMATION
  Report Type: Report from Study
  Country: US (occurrence: US)
  Receive Date: 20130305
  Receipt Date: 20130305
  Transmission Date: 20140127
  Serious: Yes (Death, Hospitalization)
  Sender: FDA-Public Use
  Company Number: US-009507513-1301USA008859

PATIENT
  Age: 72 Year
  Sex: Male
  Weight: 92 kg

DRUGS (3)
  1. VORINOSTAT [Suspect]
     Indication: NON-SMALL CELL LUNG CANCER
     Dosage: DAYS -2 TO +2
     Route: 048
     Dates: start: 20121229
  2. PACLITAXEL [Suspect]
     Indication: NON-SMALL CELL LUNG CANCER
     Dosage: 200 MG/M2 OVER 3 HOURS ON DAY 0
     Route: 042
     Dates: start: 20121231
  3. CARBOPLATIN [Suspect]
     Indication: NON-SMALL CELL LUNG CANCER
     Dosage: 6 MG/ML OVER 30 MINUTES ON DAY 0
     Route: 042
     Dates: start: 20121231

REACTIONS (5)
  - Hypotension [Unknown]
  - Sepsis [Fatal]
  - Dehydration [Unknown]
  - Nausea [Unknown]
  - Vomiting [Unknown]
